FAERS Safety Report 9710551 (Version 1)
Quarter: 2013Q4

REPORT INFORMATION
  Report Type: Spontaneous
  Country: US (occurrence: US)
  Receive Date: 20131126
  Receipt Date: 20131126
  Transmission Date: 20140711
  Serious: No
  Sender: FDA-Public Use
  Company Number: US-BRISTOL-MYERS SQUIBB COMPANY-18886366

PATIENT
  Age: 72 Year
  Sex: Female
  Weight: 95.24 kg

DRUGS (2)
  1. BYETTA [Suspect]
     Dates: start: 20130314
  2. GLUCOPHAGE [Concomitant]

REACTIONS (2)
  - Diarrhoea [Not Recovered/Not Resolved]
  - Weight decreased [Unknown]
